FAERS Safety Report 13515477 (Version 2)
Quarter: 2017Q2

REPORT INFORMATION
  Report Type: Spontaneous
  Country: JP (occurrence: JP)
  Receive Date: 20170504
  Receipt Date: 20170522
  Transmission Date: 20170830
  Serious: Yes (Other)
  Sender: FDA-Public Use
  Company Number: JP-PFIZER INC-2017196859

PATIENT
  Age: 86 Year
  Sex: Female
  Weight: 58 kg

DRUGS (1)
  1. NOVASTAN [Suspect]
     Active Substance: ARGATROBAN
     Indication: CEREBRAL THROMBOSIS
     Dosage: 6 DF, 1X/DAY (THE ADMINISTRATION RATE WAS 1.6 MICROGRAM/MIN)
     Route: 051

REACTIONS (2)
  - Paralysis [Unknown]
  - Drug administration error [Unknown]
